FAERS Safety Report 23875367 (Version 1)
Quarter: 2024Q2

REPORT INFORMATION
  Report Type: Spontaneous
  Country: US (occurrence: None)
  Receive Date: 20240519
  Receipt Date: 20240519
  Transmission Date: 20240716
  Serious: Yes (Disabling)
  Sender: FDA-Public Use
  Company Number: None

PATIENT
  Age: 73 Year
  Sex: Female
  Weight: 139.05 kg

DRUGS (12)
  1. OZEMPIC [Suspect]
     Active Substance: SEMAGLUTIDE
     Indication: Weight decreased
     Dosage: OTHER QUANTITY : .25 INJECTION(S)?OTHER FREQUENCY : ONCE A WEEK?OTHER ROUTE : INJECTION INTO STOMACH
     Route: 050
     Dates: start: 20230826, end: 20230902
  2. DEVICE [Concomitant]
     Active Substance: DEVICE
  3. NOVOLOG [Concomitant]
     Active Substance: INSULIN ASPART
  4. LEVEMIR [Concomitant]
     Active Substance: INSULIN DETEMIR
  5. SPIRONOLACTONE [Concomitant]
     Active Substance: SPIRONOLACTONE
  6. FUROSEMIDE [Concomitant]
     Active Substance: FUROSEMIDE
  7. CARVEDOL [Concomitant]
  8. IRBESARTAN [Concomitant]
     Active Substance: IRBESARTAN
  9. MONTELYKST ELIQUIS [Concomitant]
  10. VITAMINS [Concomitant]
     Active Substance: VITAMINS
  11. VITAMIN D [Concomitant]
     Active Substance: VITAMIN D NOS
  12. DIETARY SUPPLEMENT\UBIDECARENONE [Concomitant]
     Active Substance: DIETARY SUPPLEMENT\UBIDECARENONE

REACTIONS (7)
  - Abdominal pain upper [None]
  - Nausea [None]
  - Constipation [None]
  - Diarrhoea [None]
  - Oesophageal disorder [None]
  - Gastrooesophageal reflux disease [None]
  - Eating disorder [None]

NARRATIVE: CASE EVENT DATE: 20230923
